FAERS Safety Report 4388091-8 (Version None)
Quarter: 2004Q2

REPORT INFORMATION
  Report Type: 
  Country: None (occurrence: None)
  Receive Date: 20040629
  Receipt Date: 20040629
  Transmission Date: 20050107
  Serious: Yes (Other)
  Sender: FDA-Public Use
  Company Number: None

PATIENT
  Age: 27 Year
  Sex: Male
  Weight: 72.5755 kg

DRUGS (1)
  1. PAROXETINE HCL [Suspect]
     Indication: GENERALISED ANXIETY DISORDER
     Dosage: 20 MG ONCE DAILY ORAL
     Route: 048
     Dates: start: 20040401, end: 20040622

REACTIONS (12)
  - ABNORMAL DREAMS [None]
  - BLOOD PRESSURE DECREASED [None]
  - CONVULSION [None]
  - DISORIENTATION [None]
  - DISTURBANCE IN ATTENTION [None]
  - DRUG WITHDRAWAL SYNDROME [None]
  - EYE IRRITATION [None]
  - EYE REDNESS [None]
  - HALLUCINATION [None]
  - PALPITATIONS [None]
  - PHARYNGOLARYNGEAL PAIN [None]
  - PYREXIA [None]
